FAERS Safety Report 22108331 (Version 5)
Quarter: 2023Q2

REPORT INFORMATION
  Report Type: Report from Study
  Country: JP (occurrence: JP)
  Receive Date: 20230317
  Receipt Date: 20230503
  Transmission Date: 20230721
  Serious: Yes (Hospitalization)
  Sender: FDA-Public Use
  Company Number: JP-CHUGAI-2023008473

PATIENT
  Age: 66 Year
  Sex: Female
  Weight: 58.2 kg

DRUGS (25)
  1. ATEZOLIZUMAB [Suspect]
     Active Substance: ATEZOLIZUMAB
     Indication: Breast cancer
     Dosage: 840 MILLIGRAM, DAY1, 15
     Route: 041
     Dates: start: 20220930, end: 20230203
  2. BEVACIZUMAB [Suspect]
     Active Substance: BEVACIZUMAB
     Indication: Breast cancer
     Dosage: 10 MILLIGRAM/KILOGRAM, ONCE/2WEEKS DAY1, 15
     Route: 042
     Dates: start: 20220930, end: 20230203
  3. PACLITAXEL [Suspect]
     Active Substance: PACLITAXEL
     Indication: Breast cancer
     Dosage: 90 MILLIGRAM/SQ.3TIMES/4WEEKS METER, DAY1, 8, 15
     Route: 042
     Dates: start: 20220930
  4. METFORMIN HYDROCHLORIDE [Concomitant]
     Active Substance: METFORMIN HYDROCHLORIDE
     Indication: Diabetes mellitus
     Dosage: 500 MILLIGRAM
     Route: 048
     Dates: start: 201908
  5. LOXOPROFEN [Concomitant]
     Active Substance: LOXOPROFEN
     Indication: Tumour pain
     Dosage: 60 MILLIGRAM, BID
     Route: 048
     Dates: start: 20191227
  6. REBAMIPIDE [Concomitant]
     Active Substance: REBAMIPIDE
     Indication: Gastritis prophylaxis
     Dosage: 100 MILLIGRAM, BID
     Route: 048
     Dates: start: 20220415
  7. ACETAMINOPHEN [Concomitant]
     Active Substance: ACETAMINOPHEN
     Indication: Tumour pain
     Dosage: 500 MILLIGRAM, QD
     Route: 048
     Dates: start: 20220121
  8. U-PASTA [Concomitant]
     Indication: Breast cancer
     Dosage: UNK, PRN
     Route: 061
     Dates: start: 20200821
  9. ROZEX [METRONIDAZOLE] [Concomitant]
     Indication: Breast cancer
     Dosage: UNK, PRN
     Route: 061
     Dates: start: 20211126
  10. OXYCODONE HYDROCHLORIDE [Concomitant]
     Active Substance: OXYCODONE HYDROCHLORIDE
     Indication: Tumour pain
     Dosage: 5 MILLIGRAM, TID
     Route: 048
     Dates: start: 20220318
  11. OXYCODONE HYDROCHLORIDE [Concomitant]
     Active Substance: OXYCODONE HYDROCHLORIDE
     Indication: Tumour pain
     Dosage: 2.5 MILLIGRAM, PRN
     Route: 048
     Dates: start: 20220603
  12. MOVICOL [Concomitant]
     Active Substance: POLYETHYLENE GLYCOL 3350\POTASSIUM CHLORIDE\SODIUM BICARBONATE\SODIUM CHLORIDE
     Indication: Constipation
     Dosage: UNK, PRN
     Route: 048
     Dates: start: 20220715
  13. DAYVIGO [Concomitant]
     Active Substance: LEMBOREXANT
     Indication: Insomnia
     Dosage: 10 MILLIGRAM, PRN
     Route: 048
     Dates: start: 20220826
  14. FEXOFENADINE HYDROCHLORIDE [Concomitant]
     Active Substance: FEXOFENADINE HYDROCHLORIDE
     Indication: Pruritus
     Dosage: 120 MILLIGRAM, BID
     Route: 048
     Dates: start: 20220930
  15. ENTRESTO [Concomitant]
     Active Substance: SACUBITRIL\VALSARTAN
     Indication: Hypertension
     Dosage: 200 MILLIGRAM, QD
     Route: 048
     Dates: start: 2021
  16. AMLODIPINE BESYLATE [Concomitant]
     Active Substance: AMLODIPINE BESYLATE
     Indication: Hypertension
     Dosage: 2.5 MILLIGRAM, QD
     Route: 048
     Dates: start: 2021
  17. JARDIANCE [Concomitant]
     Active Substance: EMPAGLIFLOZIN
     Indication: Diabetes mellitus
     Dosage: 25 MILLIGRAM, QD
     Route: 048
     Dates: start: 2021
  18. VILDAGLIPTIN [Concomitant]
     Active Substance: VILDAGLIPTIN
     Indication: Diabetes mellitus
     Dosage: 50 MILLIGRAM, QD
     Route: 048
     Dates: start: 20221004
  19. ATORVASTATIN [Concomitant]
     Active Substance: ATORVASTATIN
     Indication: Hypercholesterolaemia
     Dosage: 10 MILLIGRAM, QD
     Route: 048
     Dates: start: 2022
  20. DIPHENHYDRAMINE [Concomitant]
     Active Substance: DIPHENHYDRAMINE
     Indication: Pruritus
     Dosage: UNK UNK, PRN
     Route: 061
     Dates: start: 20221028
  21. ALCLOMETASONE DIPROPIONATE [Concomitant]
     Active Substance: ALCLOMETASONE DIPROPIONATE
     Indication: Pruritus
     Dosage: UNK UNK, PRN
     Route: 061
     Dates: start: 20221124
  22. BILASTINE [Concomitant]
     Active Substance: BILASTINE
     Indication: Pruritus
     Dosage: 20 MILLIGRAM, PRN
     Route: 048
     Dates: start: 20221028
  23. SPIRONOLACTONE [Concomitant]
     Active Substance: SPIRONOLACTONE
     Indication: Oedema
     Dosage: 25 MILLIGRAM, QD
     Route: 048
     Dates: start: 20221104
  24. FUROSEMIDE [Concomitant]
     Active Substance: FUROSEMIDE
     Indication: Oedema
     Dosage: 40 MILLIGRAM, QD
     Route: 048
     Dates: start: 20221111
  25. RINDERON-VA [Concomitant]
     Indication: Pruritus
     Route: 061
     Dates: start: 20220812

REACTIONS (1)
  - Nephrotic syndrome [Recovering/Resolving]

NARRATIVE: CASE EVENT DATE: 20230217
